FAERS Safety Report 16094149 (Version 1)
Quarter: 2019Q2

REPORT INFORMATION
  Report Type: Spontaneous
  Country: US (occurrence: US)
  Receive Date: 20190318
  Receipt Date: 20190318
  Transmission Date: 20190711
  Serious: Yes (Other)
  Sender: FDA-Public Use
  Company Number: None

PATIENT
  Sex: Female

DRUGS (1)
  1. SALONPAS PAIN RELIEF [Suspect]
     Active Substance: MENTHOL\METHYL SALICYLATE

REACTIONS (5)
  - Application site swelling [None]
  - Application site erythema [None]
  - Application site pain [None]
  - Application site vesicles [None]
  - Application site pruritus [None]

NARRATIVE: CASE EVENT DATE: 20190301
